FAERS Safety Report 18554098 (Version 1)
Quarter: 2020Q4

REPORT INFORMATION
  Report Type: Spontaneous
  Country: US (occurrence: US)
  Receive Date: 20201127
  Receipt Date: 20201127
  Transmission Date: 20210114
  Serious: Yes (Other)
  Sender: FDA-Public Use
  Company Number: US-SUNOVION-2020SUN003524

PATIENT
  Sex: Female

DRUGS (3)
  1. LATUDA [Suspect]
     Active Substance: LURASIDONE HYDROCHLORIDE
     Indication: BIPOLAR DISORDER
     Dosage: 40 MG
     Route: 048
  2. LATUDA [Suspect]
     Active Substance: LURASIDONE HYDROCHLORIDE
     Indication: DEPRESSION
  3. LATUDA [Suspect]
     Active Substance: LURASIDONE HYDROCHLORIDE
     Indication: ANXIETY

REACTIONS (11)
  - Morning sickness [Unknown]
  - Limb discomfort [Unknown]
  - Maternal exposure during pregnancy [Unknown]
  - Tunnel vision [Unknown]
  - Confusional state [Unknown]
  - Syncope [Unknown]
  - Asthenia [Unknown]
  - Hypoaesthesia [Unknown]
  - Memory impairment [Unknown]
  - Visual impairment [Unknown]
  - Off label use [Unknown]
